FAERS Safety Report 7985718-6 (Version None)
Quarter: 2011Q4

REPORT INFORMATION
  Report Type: 
  Country: None (occurrence: None)
  Receive Date: 20111216
  Receipt Date: 20111216
  Transmission Date: 20120403
  Serious: Yes (Other)
  Sender: FDA-Public Use
  Company Number: None

PATIENT
  Age: 45 Year
  Sex: Female
  Weight: 122.46 kg

DRUGS (5)
  1. DEXTROMETHORPHAN HYDROBROMIDE [Concomitant]
  2. ADVAIR DISKUS 100/50 [Suspect]
     Indication: COUGH
     Dosage: I MEASURED DOSE
     Route: 055
     Dates: start: 20111210, end: 20111215
  3. PREDNISONE [Concomitant]
  4. TESSALON [Concomitant]
  5. RANITIDINE [Concomitant]

REACTIONS (2)
  - DIZZINESS [None]
  - PALPITATIONS [None]
